FAERS Safety Report 17890535 (Version 2)
Quarter: 2020Q3

REPORT INFORMATION
  Report Type: Report from Study
  Country: IT (occurrence: IT)
  Receive Date: 20200612
  Receipt Date: 20200812
  Transmission Date: 20201103
  Serious: Yes (Hospitalization, Other)
  Sender: FDA-Public Use
  Company Number: IT-MYLANLABS-2020M1055890

PATIENT
  Age: 51 Year
  Sex: Male

DRUGS (3)
  1. DIAZEPAM. [Suspect]
     Active Substance: DIAZEPAM
     Indication: PRODUCT USED FOR UNKNOWN INDICATION
     Dosage: 20 MILLILITER, TOTAL
     Route: 065
     Dates: start: 20200430, end: 20200430
  2. CONTRAMAL [Suspect]
     Active Substance: TRAMADOL HYDROCHLORIDE
     Indication: PRODUCT USED FOR UNKNOWN INDICATION
     Dosage: 10 DOSAGE FORM, TOTAL
     Route: 048
     Dates: start: 20200430, end: 20200430
  3. AMOXICILLIN. [Suspect]
     Active Substance: AMOXICILLIN
     Indication: PRODUCT USED FOR UNKNOWN INDICATION
     Dosage: 9 DOSAGE FORM, TOTAL
     Route: 048
     Dates: start: 20200430, end: 20200430

REACTIONS (4)
  - Substance abuse [Recovering/Resolving]
  - Drug abuse [Unknown]
  - Intentional self-injury [Unknown]
  - Gastritis [Recovering/Resolving]

NARRATIVE: CASE EVENT DATE: 20200430
